FAERS Safety Report 12908970 (Version 1)
Quarter: 2016Q4

REPORT INFORMATION
  Report Type: Spontaneous
  Country: US (occurrence: US)
  Receive Date: 20161103
  Receipt Date: 20161103
  Transmission Date: 20170207
  Serious: No
  Sender: FDA-Public Use
  Company Number: US-JAZZ-2016-US-016610

PATIENT
  Sex: Male

DRUGS (9)
  1. XYREM [Suspect]
     Active Substance: SODIUM OXYBATE
     Indication: NARCOLEPSY
     Dosage: 2.25 G, BID
     Route: 048
     Dates: start: 201305, end: 201306
  2. XYREM [Suspect]
     Active Substance: SODIUM OXYBATE
     Indication: CATAPLEXY
     Dosage: DOSE ADJUSTMENT
     Route: 048
     Dates: start: 201306, end: 201607
  3. EFFEXOR XR [Concomitant]
     Active Substance: VENLAFAXINE HYDROCHLORIDE
  4. XYREM [Suspect]
     Active Substance: SODIUM OXYBATE
     Dosage: 4.5 G, BID
     Route: 048
     Dates: start: 201607
  5. ASPIRIN. [Concomitant]
     Active Substance: ASPIRIN
  6. PROVIGIL [Concomitant]
     Active Substance: MODAFINIL
  7. FLONASE [Concomitant]
     Active Substance: FLUTICASONE PROPIONATE
  8. ARMODAFINIL. [Suspect]
     Active Substance: ARMODAFINIL
     Indication: PRODUCT USED FOR UNKNOWN INDICATION
  9. CLARITIN [Concomitant]
     Active Substance: LORATADINE

REACTIONS (12)
  - Balance disorder [Unknown]
  - Temperature intolerance [Unknown]
  - Dizziness [Not Recovered/Not Resolved]
  - Pre-existing condition improved [Unknown]
  - Dysgeusia [Unknown]
  - Muscle tightness [Recovered/Resolved]
  - Therapeutic response unexpected [Unknown]
  - Dyspnoea [Unknown]
  - Tooth disorder [Unknown]
  - Muscle disorder [Recovered/Resolved]
  - Feeling drunk [Unknown]
  - Pain in extremity [Recovered/Resolved]

NARRATIVE: CASE EVENT DATE: 2016
